FAERS Safety Report 6713024-6 (Version None)
Quarter: 2010Q2

REPORT INFORMATION
  Report Type: 
  Country: None (occurrence: None)
  Receive Date: 20100505
  Receipt Date: 20100505
  Transmission Date: 20101027
  Serious: No
  Sender: FDA-Public Use
  Company Number: None

PATIENT
  Age: 3 Year
  Weight: 12.7007 kg

DRUGS (1)
  1. TYLENOL HAVE THIS INFORMATION AT HOME JOHNSON + JOHNSON [Suspect]
     Dates: start: 20100428, end: 20100428

REACTIONS (2)
  - GASTRIC DISORDER [None]
  - PRODUCT QUALITY ISSUE [None]
